FAERS Safety Report 14779793 (Version 1)
Quarter: 2018Q2

REPORT INFORMATION
  Report Type: Report from Study
  Country: US (occurrence: US)
  Receive Date: 20180419
  Receipt Date: 20180419
  Transmission Date: 20180711
  Serious: Yes (Other)
  Sender: FDA-Public Use
  Company Number: US-GILEAD-2018-0333823

PATIENT
  Age: 66 Year
  Sex: Female

DRUGS (1)
  1. SOFOSBUVIR W/VELPATASVIR [Suspect]
     Active Substance: SOFOSBUVIR\VELPATASVIR
     Indication: CHRONIC HEPATITIS C
     Dosage: 1 DF, UNK
     Route: 048
     Dates: start: 20180123

REACTIONS (7)
  - Depression [Unknown]
  - Arthralgia [Unknown]
  - Headache [Unknown]
  - Muscular weakness [Unknown]
  - Bone pain [Unknown]
  - Suicidal ideation [Unknown]
  - Fatigue [Unknown]
